FAERS Safety Report 4903345-1 (Version None)
Quarter: 2006Q1

REPORT INFORMATION
  Report Type: 
  Country: None (occurrence: None)
  Receive Date: 20060206
  Receipt Date: 20060206
  Transmission Date: 20060701
  Serious: No
  Sender: FDA-Public Use
  Company Number: None

PATIENT
  Age: 55 Year
  Sex: Male

DRUGS (1)
  1. ENALAPRIL [Suspect]
     Indication: HYPERTENSION
     Dosage: 20MG BID
     Dates: start: 20040901, end: 20051001

REACTIONS (4)
  - DYSPHAGIA [None]
  - DYSPNOEA [None]
  - EPIGLOTTIC OEDEMA [None]
  - PALATAL OEDEMA [None]
